FAERS Safety Report 9859640 (Version 2)
Quarter: 2014Q1

REPORT INFORMATION
  Report Type: Spontaneous
  Country: JP (occurrence: JP)
  Receive Date: 20140131
  Receipt Date: 20140210
  Transmission Date: 20141002
  Serious: Yes (Death, Other)
  Sender: FDA-Public Use
  Company Number: PHHY2014JP011861

PATIENT
  Age: 22 Year
  Sex: Male

DRUGS (3)
  1. AFINITOR [Suspect]
     Indication: ANGIOMYOLIPOMA
     Dosage: 5 MG, QOD
     Route: 048
     Dates: start: 20130522, end: 20131119
  2. AFINITOR [Suspect]
     Dosage: 5 MG, DAILY
     Route: 048
     Dates: start: 20131119
  3. DEPAKENE [Suspect]
     Route: 048

REACTIONS (2)
  - Death [Fatal]
  - Epilepsy [Unknown]
